FAERS Safety Report 9361438 (Version 1)
Quarter: 2013Q2

REPORT INFORMATION
  Report Type: Spontaneous
  Country: IN (occurrence: IN)
  Receive Date: 20130621
  Receipt Date: 20130621
  Transmission Date: 20140414
  Serious: Yes (Other)
  Sender: FDA-Public Use
  Company Number: IN-PFIZER INC-2013182035

PATIENT
  Age: 65 Year
  Sex: Female

DRUGS (5)
  1. ATORVASTATIN CALCIUM [Suspect]
     Dosage: 10 MG, DAILY
  2. CLOPIDOGREL [Interacting]
     Dosage: 75 MG, DAILY
  3. FUROSEMIDE [Suspect]
     Dosage: 40 MG, BDS
  4. AMLODIPINE BESILATE [Interacting]
     Dosage: 10 MG, DAILY
  5. INSULIN [Concomitant]
     Dosage: UNK

REACTIONS (6)
  - Drug interaction [Unknown]
  - Rhabdomyolysis [Recovering/Resolving]
  - Renal failure acute [Recovering/Resolving]
  - Hypokalaemia [Unknown]
  - Gait disturbance [None]
  - Haemodialysis [None]
